FAERS Safety Report 11462892 (Version 1)
Quarter: 2015Q3

REPORT INFORMATION
  Report Type: Spontaneous
  Country: US (occurrence: US)
  Receive Date: 20150831
  Receipt Date: 20150831
  Transmission Date: 20151125
  Serious: No
  Sender: FDA-Public Use
  Company Number: US-ELI_LILLY_AND_COMPANY-US201102002466

PATIENT
  Sex: Female

DRUGS (2)
  1. CYMBALTA [Suspect]
     Active Substance: DULOXETINE HYDROCHLORIDE
     Indication: FIBROMYALGIA
     Dosage: 30 MG, EACH EVENING
  2. CYMBALTA [Suspect]
     Active Substance: DULOXETINE HYDROCHLORIDE
     Dosage: 30 MG, EACH MORNING

REACTIONS (8)
  - Poor quality sleep [Unknown]
  - Back pain [Unknown]
  - Nausea [Recovered/Resolved]
  - Bladder discomfort [Unknown]
  - Intentional product misuse [Recovered/Resolved]
  - Nocturia [Unknown]
  - Micturition urgency [Unknown]
  - Pain in extremity [Unknown]
